FAERS Safety Report 6303518-X (Version None)
Quarter: 2009Q3

REPORT INFORMATION
  Report Type: 
  Country: None (occurrence: None)
  Receive Date: 20090810
  Receipt Date: 20090731
  Transmission Date: 20100115
  Serious: Yes (Death, Hospitalization)
  Sender: FDA-Public Use
  Company Number: US-SANOFI-SYNTHELABO-F03200900087

PATIENT
  Age: 85 Year
  Sex: Female

DRUGS (11)
  1. OXALIPLATIN [Suspect]
     Indication: COLON CANCER
     Dosage: 85 MG/M2 IV OVER 20 MINUTES OD DAY 1, EVERY 2 WEEKS FOR 12 CYCLES
     Route: 042
     Dates: start: 20070814, end: 20070814
  2. NOVORAPID INSULIN [Concomitant]
  3. CELEXA [Concomitant]
     Indication: DRUG USE FOR UNKNOWN INDICATION
     Dosage: UNK
     Route: 065
  4. METFORMIN HCL [Concomitant]
     Dosage: UNK
     Route: 065
  5. CIPROFLOXACIN [Concomitant]
     Indication: DRUG USE FOR UNKNOWN INDICATION
     Dosage: UNK
     Route: 065
  6. NOVORAPID INSULIN [Concomitant]
     Indication: DRUG USE FOR UNKNOWN INDICATION
     Dosage: UNK
     Route: 065
  7. CHOLESTYRAMINE [Concomitant]
     Indication: DRUG USE FOR UNKNOWN INDICATION
     Dosage: UNK
     Route: 065
  8. ELTROXIN [Concomitant]
     Indication: DRUG USE FOR UNKNOWN INDICATION
     Dosage: UNK
     Route: 065
  9. FLUOROURACIL [Suspect]
     Indication: COLON CANCER
     Dosage: 400 MG/M2 IVP ON DAY 1 EVERY 2 WEEKS FOR 12 CYCLES
     Route: 040
     Dates: start: 20070814, end: 20070814
  10. FLUOROURACIL [Suspect]
     Dosage: 2400 MG CIV OVER 46-48 HOURS EVERY 2 WEEKS FOR 12 CYCLES
     Route: 041
     Dates: start: 20070814, end: 20070801
  11. LEUCOVORIN CALCIUM [Suspect]
     Indication: COLON CANCER
     Dosage: 400 MG/M2 IV OVER 120 MINUTES ON DAY 1, EVERY 2 WEEKS FOR 12 CYCLES
     Route: 042
     Dates: start: 20070814, end: 20070814

REACTIONS (1)
  - CHOLANGITIS SCLEROSING [None]
